FAERS Safety Report 22644403 (Version 1)
Quarter: 2023Q2

REPORT INFORMATION
  Report Type: Spontaneous
  Country: CA (occurrence: CA)
  Receive Date: 20230627
  Receipt Date: 20230627
  Transmission Date: 20230721
  Serious: Yes (Other)
  Sender: FDA-Public Use
  Company Number: CA-PFIZER INC-202300114440

PATIENT
  Age: 13 Year
  Sex: Male

DRUGS (1)
  1. GENOTROPIN [Suspect]
     Active Substance: SOMATROPIN
     Indication: Congenital osteodystrophy
     Dosage: 2 MG EVERY 6 DAY
     Route: 058
     Dates: start: 20230223

REACTIONS (4)
  - Tympanic membrane perforation [Unknown]
  - Off label use [Unknown]
  - Arthralgia [Unknown]
  - Blood parathyroid hormone increased [Unknown]
